FAERS Safety Report 7310661-5 (Version None)
Quarter: 2011Q1

REPORT INFORMATION
  Report Type: 
  Country: None (occurrence: None)
  Receive Date: 20110211
  Receipt Date: 20110207
  Transmission Date: 20110831
  Serious: Yes (Death, Hospitalization)
  Sender: FDA-Public Use
  Company Number: 2010SP030405

PATIENT
  Age: 40 Year
  Sex: Male

DRUGS (6)
  1. SERTRALINE [Concomitant]
  2. LIDOCAINE [Concomitant]
  3. SALICYLIC ACID [Concomitant]
  4. HYDROXYZINE [Concomitant]
  5. REFLEX (MIRTAZAPINE /01293201/) [Suspect]
     Indication: PRODUCT USED FOR UNKNOWN INDICATION
     Dosage: PO
     Route: 048
  6. BROMAZEPAM [Concomitant]

REACTIONS (2)
  - OVERDOSE [None]
  - COMPLETED SUICIDE [None]
